FAERS Safety Report 23949548 (Version 2)
Quarter: 2024Q2

REPORT INFORMATION
  Report Type: Report from Study
  Country: US (occurrence: US)
  Receive Date: 20240607
  Receipt Date: 20240610
  Transmission Date: 20240716
  Serious: Yes (Hospitalization)
  Sender: FDA-Public Use
  Company Number: US-ABBVIE-5702709

PATIENT
  Age: 57 Year
  Sex: Female
  Weight: 59 kg

DRUGS (13)
  1. QULIPTA [Suspect]
     Active Substance: ATOGEPANT
     Indication: Product used for unknown indication
     Dosage: FORM STRENGTH: 10 MILLIGRAM
     Route: 048
     Dates: start: 20230516, end: 20240314
  2. BUPRENORPHINE [Suspect]
     Active Substance: BUPRENORPHINE
     Indication: Pain
     Route: 065
  3. OTEZLA [Concomitant]
     Active Substance: APREMILAST
     Indication: Product used for unknown indication
     Dosage: 1 TABS BY MOUTH TWICE A DAY
     Route: 048
  4. CARISOPRODOL [Concomitant]
     Active Substance: CARISOPRODOL
     Indication: Product used for unknown indication
     Dosage: TIME INTERVAL: 0.33333333 DAYS: 1 TABS BY MOUTH THREE TIMES A DAY.
     Route: 048
  5. VITAMIN D3 [Concomitant]
     Active Substance: CHOLECALCIFEROL
     Indication: Product used for unknown indication
     Dosage: 1250 MCG 1 CAPSULES BY MOUTH EVERY MONDAY
     Route: 048
  6. CLONAZEPAM [Concomitant]
     Active Substance: CLONAZEPAM
     Indication: Product used for unknown indication
     Dosage: 1 TABS BY MOUTH TWICE A DAY
     Route: 048
  7. DULOXETINE [Concomitant]
     Active Substance: DULOXETINE
     Indication: Product used for unknown indication
     Dosage: 1 CAPSULES BY MOUTH ONCE A DAY. DO NOT CRUSH OR CHEW
     Route: 048
  8. ENBREL [Concomitant]
     Active Substance: BENZYL ALCOHOL\ETANERCEPT
     Indication: Product used for unknown indication
     Dosage: 25 MG10.5 ML?25 MILLIGRAM SUBCUTANEOUS EVERY MONDAY
     Route: 058
  9. FOLIC ACID [Concomitant]
     Active Substance: FOLIC ACID
     Indication: Product used for unknown indication
     Dosage: 1 TABS BY MOUTH ONCE A DAY
     Route: 048
  10. METHOTREXATE [Concomitant]
     Active Substance: METHOTREXATE
     Indication: Product used for unknown indication
     Dosage: 10TAB QWEEK
     Route: 048
  11. OMEPRAZOLE [Concomitant]
     Active Substance: DONEPEZIL HYDROCHLORIDE\OMEPRAZOLE\OMEPRAZOLE MAGNESIUM
     Indication: Product used for unknown indication
     Dosage: BY MOUTH ONCE A DAY
  12. TOPIRAMATE [Concomitant]
     Active Substance: TOPIRAMATE
     Indication: Product used for unknown indication
     Dosage: 1 TABS BY MOUTH BEDTIME
     Route: 048
  13. TRAZODONE [Concomitant]
     Active Substance: TRAZODONE HYDROCHLORIDE
     Indication: Product used for unknown indication
     Dosage: 2 TABS BY MOUTH BEDTIME
     Route: 048

REACTIONS (10)
  - Clostridium difficile infection [Recovered/Resolved]
  - Concussion [Unknown]
  - Road traffic accident [Unknown]
  - Headache [Not Recovered/Not Resolved]
  - Spinal operation [Unknown]
  - Head injury [Unknown]
  - Post-traumatic pain [Unknown]
  - Seizure [Unknown]
  - Fall [Unknown]
  - Traumatic haematoma [Unknown]

NARRATIVE: CASE EVENT DATE: 20230716
